FAERS Safety Report 18511395 (Version 1)
Quarter: 2020Q4

REPORT INFORMATION
  Report Type: Spontaneous
  Country: US (occurrence: US)
  Receive Date: 20201117
  Receipt Date: 20201117
  Transmission Date: 20210114
  Serious: Yes (Hospitalization)
  Sender: FDA-Public Use
  Company Number: None

PATIENT
  Age: 86 Year
  Sex: Male

DRUGS (11)
  1. TOPROL XL [Concomitant]
     Active Substance: METOPROLOL SUCCINATE
  2. FOLIC ACID. [Concomitant]
     Active Substance: FOLIC ACID
  3. HYDROCODONE [Concomitant]
     Active Substance: HYDROCODONE
  4. PLAVIX [Concomitant]
     Active Substance: CLOPIDOGREL BISULFATE
  5. TEMOVATE [Concomitant]
     Active Substance: CLOBETASOL PROPIONATE
  6. NORCO [Concomitant]
     Active Substance: ACETAMINOPHEN\HYDROCODONE BITARTRATE
  7. LASIX [Concomitant]
     Active Substance: FUROSEMIDE
  8. CYCLOPHOSPHAMIDE. [Suspect]
     Active Substance: CYCLOPHOSPHAMIDE
     Indication: LYMPHOCYTIC LEUKAEMIA
     Route: 048
  9. MEVACOR [Concomitant]
     Active Substance: LOVASTATIN
  10. HYDROCODONE [Concomitant]
     Active Substance: HYDROCODONE
  11. ZOLOFT [Concomitant]
     Active Substance: SERTRALINE HYDROCHLORIDE

REACTIONS (1)
  - Therapy interrupted [None]

NARRATIVE: CASE EVENT DATE: 20201114
